FAERS Safety Report 9893073 (Version 1)
Quarter: 2014Q1

REPORT INFORMATION
  Report Type: Report from Study
  Country: US (occurrence: US)
  Receive Date: 20140213
  Receipt Date: 20140213
  Transmission Date: 20141002
  Serious: Yes (Hospitalization, Other)
  Sender: FDA-Public Use
  Company Number: US-ROCHE-1328692

PATIENT
  Sex: Male
  Weight: 70.82 kg

DRUGS (14)
  1. AVASTIN [Suspect]
     Indication: ADENOCARCINOMA OF COLON
     Route: 042
     Dates: start: 20110506
  2. AVASTIN [Suspect]
     Indication: METASTASES TO LIVER
  3. XELODA [Suspect]
     Indication: ADENOCARCINOMA OF COLON
     Route: 048
     Dates: start: 20110506
  4. XELODA [Suspect]
     Indication: METASTASES TO LIVER
  5. ZOFRAN [Concomitant]
     Route: 065
  6. ACETAMINOPHEN [Concomitant]
     Route: 048
  7. ONDANSETRON [Concomitant]
     Route: 042
  8. FAMOTIDINE [Concomitant]
     Route: 042
  9. DOCUSATE SODIUM [Concomitant]
     Route: 048
  10. PROCHLORPERAZINE MALEATE [Concomitant]
     Route: 048
  11. OXYCODONE [Concomitant]
     Route: 048
  12. TRIAMCINOLONE ACETONIDE CREAM [Concomitant]
     Route: 061
  13. CLOTRIMAZOLE [Concomitant]
     Route: 061
  14. DEXAMETHASONE [Concomitant]
     Route: 065

REACTIONS (9)
  - Sepsis [Recovered/Resolved]
  - Hypotension [Recovered/Resolved]
  - Chronic obstructive pulmonary disease [Unknown]
  - Pyrexia [Unknown]
  - Hyperlipidaemia [Unknown]
  - Abdominal distension [Unknown]
  - Fatigue [Unknown]
  - Dermatitis [Unknown]
  - Pain [Unknown]
